FAERS Safety Report 25475699 (Version 2)
Quarter: 2025Q3

REPORT INFORMATION
  Report Type: Spontaneous
  Country: US (occurrence: US)
  Receive Date: 20250624
  Receipt Date: 20250709
  Transmission Date: 20251020
  Serious: No
  Sender: BAUSCH AND LOMB
  Company Number: US-BAUSCHBL-2025BNL011154

PATIENT
  Age: 69 Year
  Sex: Female

DRUGS (1)
  1. XIIDRA [Suspect]
     Active Substance: LIFITEGRAST
     Indication: Dry eye
     Dosage: 1 DROP IN EACH EYE TWICE DAILY
     Route: 047
     Dates: start: 202505

REACTIONS (2)
  - Ocular hyperaemia [Unknown]
  - Eye swelling [Recovered/Resolved]

NARRATIVE: CASE EVENT DATE: 20250501
